FAERS Safety Report 4715285-1 (Version None)
Quarter: 2005Q3

REPORT INFORMATION
  Report Type: 
  Country: None (occurrence: None)
  Receive Date: 20050715
  Receipt Date: 20050711
  Transmission Date: 20060218
  Serious: Yes (Death)
  Sender: FDA-Public Use
  Company Number: 200512305FR

PATIENT
  Age: 77 Year
  Sex: Female

DRUGS (4)
  1. FLAGYL [Suspect]
     Indication: CLOSTRIDIUM COLITIS
     Route: 042
     Dates: start: 20050510, end: 20050531
  2. CLAFORAN [Suspect]
     Indication: CLOSTRIDIUM COLITIS
     Route: 042
     Dates: start: 20050512, end: 20050531
  3. GENTAMICIN [Suspect]
     Indication: CLOSTRIDIUM COLITIS
     Route: 042
     Dates: start: 20050512
  4. TIMENTIN [Concomitant]
     Route: 042
     Dates: start: 20050510, end: 20050510

REACTIONS (6)
  - COMA [None]
  - DIPLEGIA [None]
  - FACIAL PALSY [None]
  - NEUROPATHY PERIPHERAL [None]
  - QUADRIPLEGIA [None]
  - SEPTIC SHOCK [None]
